FAERS Safety Report 4360773-3 (Version None)
Quarter: 2004Q2

REPORT INFORMATION
  Report Type: 
  Country: None (occurrence: None)
  Receive Date: 20040519
  Receipt Date: 20040512
  Transmission Date: 20050107
  Serious: Yes (Hospitalization)
  Sender: FDA-Public Use
  Company Number: 04-05-0688

PATIENT
  Age: 42 Year
  Sex: Male

DRUGS (2)
  1. CLOZAPINE [Suspect]
     Indication: BIPOLAR DISORDER
     Dosage: 200-700MG QD ORAL
     Route: 048
     Dates: start: 19990501
  2. CLOZAPINE [Suspect]
     Indication: SCHIZOAFFECTIVE DISORDER
     Dosage: 200-700MG QD ORAL
     Route: 048
     Dates: start: 19990501

REACTIONS (2)
  - HALLUCINATION [None]
  - OBSESSIVE-COMPULSIVE DISORDER [None]
